FAERS Safety Report 16764614 (Version 1)
Quarter: 2019Q3

REPORT INFORMATION
  Report Type: Spontaneous
  Country: US (occurrence: US)
  Receive Date: 20190712
  Receipt Date: 20190712
  Transmission Date: 20191005
  Serious: No
  Sender: FDA-Public Use
  Company Number: None

PATIENT
  Age: 60 Year
  Sex: Female
  Weight: 59.87 kg

DRUGS (7)
  1. COQ10 WITH UBIQUINOL [Concomitant]
  2. NIFEDIPINE. [Concomitant]
     Active Substance: NIFEDIPINE
  3. LEVOTHYROXINE. [Concomitant]
     Active Substance: LEVOTHYROXINE
  4. EQUATE SUPPORT ADVANCED LUBRICATING EYE [Suspect]
     Active Substance: POLYETHYLENE GLYCOL 400\PROPYLENE GLYCOL
     Indication: DRY EYE
     Dosage: ?          QUANTITY:15 ML MILLILITRE(S);?
     Route: 047
     Dates: start: 201906, end: 201907
  5. ATENOLOL. [Concomitant]
     Active Substance: ATENOLOL
  6. FISH OIL [Concomitant]
     Active Substance: FISH OIL
  7. VITAMIN D SUPPLEMENT [Concomitant]
     Active Substance: VITAMIN D NOS

REACTIONS (3)
  - Skin exfoliation [None]
  - Erythema [None]
  - Vision blurred [None]

NARRATIVE: CASE EVENT DATE: 20190629
